FAERS Safety Report 16477560 (Version 1)
Quarter: 2019Q2

REPORT INFORMATION
  Report Type: Report from Study
  Country: US (occurrence: US)
  Receive Date: 20190626
  Receipt Date: 20190626
  Transmission Date: 20190711
  Serious: Yes (Hospitalization)
  Sender: FDA-Public Use
  Company Number: US-GILEAD-2019-0395788

PATIENT
  Age: 45 Year
  Sex: Female

DRUGS (1)
  1. AMBRISENTAN [Suspect]
     Active Substance: AMBRISENTAN
     Indication: PULMONARY ARTERIAL HYPERTENSION
     Dosage: 10 MG, QD
     Route: 065
     Dates: start: 20150417

REACTIONS (8)
  - Unevaluable event [Recovered/Resolved]
  - Wheezing [Recovered/Resolved]
  - Malaise [Unknown]
  - Hiatus hernia [Recovered/Resolved]
  - Nausea [Unknown]
  - Unevaluable event [Recovered/Resolved]
  - Vomiting [Unknown]
  - Nasal congestion [Not Recovered/Not Resolved]

NARRATIVE: CASE EVENT DATE: 20180311
